FAERS Safety Report 6765891-8 (Version None)
Quarter: 2010Q2

REPORT INFORMATION
  Report Type: 
  Country: None (occurrence: None)
  Receive Date: 20100611
  Receipt Date: 20100603
  Transmission Date: 20101027
  Serious: Yes (Other)
  Sender: FDA-Public Use
  Company Number: US-ROCHE-708295

PATIENT
  Sex: Female
  Weight: 70.8 kg

DRUGS (1)
  1. CAPECITABINE [Suspect]
     Indication: BREAST CANCER
     Dosage: 1000 MG AM/PM
     Route: 048
     Dates: start: 20090930, end: 20100429

REACTIONS (1)
  - MALIGNANT NEOPLASM PROGRESSION [None]
